FAERS Safety Report 10861515 (Version 7)
Quarter: 2015Q4

REPORT INFORMATION
  Report Type: Report from Study
  Country: CA (occurrence: CA)
  Receive Date: 20150224
  Receipt Date: 20151005
  Transmission Date: 20160304
  Serious: Yes (Other)
  Sender: FDA-Public Use
  Company Number: PHHY2015CA021008

PATIENT
  Age: 57 Year
  Sex: Male

DRUGS (2)
  1. CLOZARIL [Suspect]
     Active Substance: CLOZAPINE
     Dosage: UNK
     Route: 048
     Dates: start: 20150227
  2. CLOZARIL [Suspect]
     Active Substance: CLOZAPINE
     Indication: PRODUCT USED FOR UNKNOWN INDICATION
     Dosage: UNK
     Route: 048
     Dates: start: 20121128, end: 20121227

REACTIONS (9)
  - Hallucination [Unknown]
  - Sarcoidosis [Unknown]
  - Neutropenia [Recovered/Resolved]
  - Neuroleptic malignant syndrome [Unknown]
  - Psychotic disorder [Unknown]
  - Neutrophil count decreased [Not Recovered/Not Resolved]
  - Deafness [Unknown]
  - Delusion [Unknown]
  - White blood cell count decreased [Not Recovered/Not Resolved]

NARRATIVE: CASE EVENT DATE: 20150928
